FAERS Safety Report 5602220-7 (Version None)
Quarter: 2008Q1

REPORT INFORMATION
  Report Type: 
  Country: None (occurrence: None)
  Receive Date: 20080125
  Receipt Date: 20080115
  Transmission Date: 20080703
  Serious: Yes (Hospitalization, Other)
  Sender: FDA-Public Use
  Company Number: US-ASTRAZENECA-2006UW11704

PATIENT
  Age: 43 Year
  Sex: Male
  Weight: 77.3 kg

DRUGS (32)
  1. SEROQUEL [Suspect]
     Indication: DEPRESSION
     Dosage: 150 MG DAILY AND 25 MG QHS
     Route: 048
     Dates: start: 20030401, end: 20050501
  2. SEROQUEL [Suspect]
     Dosage: 1 TO 4 TABLETS AT BEDTIME
     Route: 048
     Dates: start: 20050526, end: 20060526
  3. ZYPREXA [Suspect]
     Dates: start: 20030101, end: 20050101
  4. EFFEXOR XR [Concomitant]
     Route: 048
     Dates: start: 20030917, end: 20050930
  5. EFFEXOR XR [Concomitant]
     Route: 048
     Dates: start: 20050930
  6. DAPSONE [Concomitant]
  7. CLONAZEPAM [Concomitant]
     Route: 048
     Dates: start: 20030917
  8. REMERON [Concomitant]
  9. CLARITIN [Concomitant]
  10. KALETRA [Concomitant]
  11. ZIAGEN [Concomitant]
  12. LITHIUM CARBONATE [Concomitant]
     Dates: start: 20031114
  13. VIRAMUNE [Concomitant]
  14. TRAZODONE HCL [Concomitant]
     Route: 048
     Dates: start: 20040115
  15. REMERON [Concomitant]
     Route: 048
     Dates: start: 20040212
  16. FLUCONAZOLE [Concomitant]
     Route: 048
     Dates: start: 20050214
  17. FLUCONAZOLE [Concomitant]
     Route: 048
     Dates: start: 20050708
  18. TRIZIVIR [Concomitant]
     Route: 048
     Dates: start: 20050128
  19. COMBIVIR [Concomitant]
     Route: 048
     Dates: start: 20050708
  20. REYATAZ [Concomitant]
     Route: 048
     Dates: start: 20050708
  21. AMBIEN [Concomitant]
     Route: 048
     Dates: start: 20050708
  22. PROTONIX [Concomitant]
     Route: 048
     Dates: start: 20050708
  23. PROMETHAZINE [Concomitant]
     Route: 048
  24. ZITHROMAX [Concomitant]
     Route: 048
     Dates: start: 20050708
  25. LISINOPRIL [Concomitant]
     Route: 048
     Dates: start: 20050811
  26. PAROXETINE [Concomitant]
     Route: 048
     Dates: start: 20060105
  27. TRIMETHOPRIM + SULFAMETHOXAZOLE [Concomitant]
     Dosage: 1 TABLET ON MON,. WED, FRI
     Route: 048
     Dates: start: 20050708
  28. RISPERDAL [Concomitant]
     Route: 048
     Dates: start: 20060105
  29. HYDROCORTISONE [Concomitant]
     Dosage: APPLY THREE TIMES DAILY
     Route: 061
     Dates: start: 20050708
  30. FUZEON [Concomitant]
     Route: 058
     Dates: start: 20060413
  31. MUPIROCIN [Concomitant]
     Dosage: APPLY 4 TIMES A DAY TO AFFECTED AREA
     Route: 061
     Dates: start: 20060112
  32. CHEMOTHERAPY [Concomitant]
     Indication: OESOPHAGEAL CARCINOMA

REACTIONS (9)
  - CEREBROVASCULAR ACCIDENT [None]
  - DIABETIC COMA [None]
  - DIABETIC COMPLICATION [None]
  - FOOT FRACTURE [None]
  - HEART VALVE INCOMPETENCE [None]
  - LEFT VENTRICULAR HYPERTROPHY [None]
  - MENISCUS LESION [None]
  - OESOPHAGEAL CARCINOMA [None]
  - TRANSIENT ISCHAEMIC ATTACK [None]
